FAERS Safety Report 6437477-6 (Version None)
Quarter: 2009Q4

REPORT INFORMATION
  Report Type: 
  Country: None (occurrence: None)
  Receive Date: 20091112
  Receipt Date: 20091109
  Transmission Date: 20100525
  Serious: Yes (Death)
  Sender: FDA-Public Use
  Company Number: PHEH2009US06831

PATIENT
  Sex: Female

DRUGS (15)
  1. EXJADE [Suspect]
     Indication: 5Q MINUS SYNDROME
     Dosage: 2000 MG, QD
     Route: 048
     Dates: start: 20090615, end: 20091006
  2. EXJADE [Suspect]
     Indication: MYELODYSPLASTIC SYNDROME
     Dosage: 2500 MG, QD
  3. PRANDIN ^KUHN^ [Concomitant]
     Dosage: UNK
  4. SINGULAIR [Concomitant]
     Dosage: UNK
  5. LACTULOSE [Concomitant]
     Dosage: UNK
  6. TYLENOL [Concomitant]
     Dosage: UNK
  7. ZINC [Concomitant]
     Dosage: UNK
  8. PRILOSEC [Concomitant]
     Dosage: UNK
  9. FIBERCON (POLYCARBOPHIL CALCIUM) [Concomitant]
     Dosage: UNK
  10. MAGNESIUM OXIDE [Concomitant]
     Dosage: UNK
  11. LEXAPRO [Concomitant]
     Dosage: UNK
  12. MULTI-VITAMINS [Concomitant]
     Dosage: UNK
  13. LISINOPRIL [Concomitant]
     Dosage: UNK
  14. COLACE [Concomitant]
     Dosage: UNK
  15. MILK OF MAGNESIA TAB [Concomitant]
     Dosage: UNK

REACTIONS (2)
  - BLOOD GLUCOSE DECREASED [None]
  - DEATH [None]
